FAERS Safety Report 24024188 (Version 1)
Quarter: 2024Q2

REPORT INFORMATION
  Report Type: Report from Study
  Country: CA (occurrence: CA)
  Receive Date: 20240627
  Receipt Date: 20240627
  Transmission Date: 20240715
  Serious: No
  Sender: FDA-Public Use
  Company Number: CA-ROCHE-3497296

PATIENT
  Sex: Female

DRUGS (1)
  1. ALECTINIB [Suspect]
     Active Substance: ALECTINIB
     Indication: Non-small cell lung cancer
     Dosage: 450MG PO BID AS PER PRESCRIPTION RECEIVED
     Route: 048
     Dates: start: 20210602, end: 202312

REACTIONS (1)
  - Drug ineffective [Unknown]
